FAERS Safety Report 18535406 (Version 2)
Quarter: 2021Q2

REPORT INFORMATION
  Report Type: Report from Study
  Country: BR (occurrence: BR)
  Receive Date: 20201123
  Receipt Date: 20210511
  Transmission Date: 20210717
  Serious: Yes (Hospitalization, Other)
  Sender: FDA-Public Use
  Company Number: BR-JNJFOC-20201128636

PATIENT
  Age: 3 Decade
  Sex: Female
  Weight: 57 kg

DRUGS (2)
  1. REMICADE [Suspect]
     Active Substance: INFLIXIMAB
     Indication: COLITIS ULCERATIVE
     Dosage: 3 VIALS
     Route: 042
     Dates: start: 20200714, end: 20201116
  2. REMICADE [Suspect]
     Active Substance: INFLIXIMAB
     Indication: COLITIS

REACTIONS (3)
  - Tuberculosis [Not Recovered/Not Resolved]
  - Abdominal pain [Unknown]
  - Haemorrhage [Unknown]
